FAERS Safety Report 4900813-3 (Version None)
Quarter: 2006Q1

REPORT INFORMATION
  Report Type: 
  Country: None (occurrence: None)
  Receive Date: 20060201
  Receipt Date: 20060116
  Transmission Date: 20060701
  Serious: Yes (Other)
  Sender: FDA-Public Use
  Company Number: DE200601002552

PATIENT
  Age: 62 Year
  Sex: Female

DRUGS (3)
  1. FORTEO [Suspect]
     Indication: OSTEOPOROSIS
     Dosage: 20 UG, DAILY (1/D), SUBCUTANEOUS
     Route: 058
     Dates: start: 20050101
  2. FORTEO [Concomitant]
  3. CALCIMAGON-D3/SCH/(CALCIUM CARBONATE, COLECACIFEROL) [Concomitant]

REACTIONS (2)
  - HYPOTHYROIDISM [None]
  - OSTEONECROSIS [None]
